FAERS Safety Report 5805415-2 (Version None)
Quarter: 2008Q3

REPORT INFORMATION
  Report Type: 
  Country: None (occurrence: None)
  Receive Date: 20080709
  Receipt Date: 20080709
  Transmission Date: 20090109
  Serious: No
  Sender: FDA-Public Use
  Company Number: None

PATIENT
  Sex: Female

DRUGS (2)
  1. BUPRION XL 150MG QD PO [Suspect]
     Indication: MYELODYSPLASTIC SYNDROME
     Dosage: 150 MG QD PO
     Route: 048
     Dates: start: 20080619, end: 20080705
  2. BUPRION XL 300MG QD PO [Suspect]
     Dosage: 300MG QD PO
     Route: 048

REACTIONS (4)
  - AGITATION [None]
  - DEPRESSION [None]
  - HEADACHE [None]
  - NAUSEA [None]
